FAERS Safety Report 24560435 (Version 1)
Quarter: 2024Q4

REPORT INFORMATION
  Report Type: Spontaneous
  Country: JP (occurrence: JP)
  Receive Date: 20241029
  Receipt Date: 20241029
  Transmission Date: 20250115
  Serious: Yes (Death)
  Sender: STRIDES
  Company Number: JP-STRIDES ARCOLAB LIMITED-2024SP013859

PATIENT
  Age: 71 Year
  Sex: Female

DRUGS (6)
  1. METHOTREXATE [Suspect]
     Active Substance: METHOTREXATE
     Indication: Rheumatoid arthritis
     Dosage: UNK
     Route: 065
  2. PREDNISOLONE [Suspect]
     Active Substance: PREDNISOLONE
     Indication: Rheumatoid arthritis
     Dosage: UNK
     Route: 065
  3. PREDNISOLONE [Suspect]
     Active Substance: PREDNISOLONE
     Indication: Epstein-Barr virus associated lymphoproliferative disorder
     Dosage: UNK, (C-MOPP CHEMOTHERAPY)
     Route: 065
  4. PREDNISOLONE [Suspect]
     Active Substance: PREDNISOLONE
     Indication: Immune system disorder
  5. TACROLIMUS [Suspect]
     Active Substance: TACROLIMUS
     Indication: Rheumatoid arthritis
     Dosage: UNK
     Route: 065
  6. SULFASALAZINE [Concomitant]
     Active Substance: SULFASALAZINE
     Indication: Rheumatoid arthritis
     Dosage: UNK
     Route: 065

REACTIONS (3)
  - Immune system disorder [Fatal]
  - Epstein-Barr virus associated lymphoproliferative disorder [Fatal]
  - Off label use [Unknown]
